FAERS Safety Report 9238017 (Version 1)
Quarter: 2013Q1

REPORT INFORMATION
  Report Type: Spontaneous
  Country: US (occurrence: None)
  Receive Date: 20121107
  Receipt Date: 20121107
  Transmission Date: 20140127
  Serious: No
  Sender: FDA-Public Use
  Company Number: 2012HGS-003916

PATIENT
  Age: 44 Year
  Sex: Female
  Weight: 88.45 kg

DRUGS (5)
  1. BENLYSTA [Suspect]
     Indication: SYSTEMIC LUPUS ERYTHEMATOSUS
     Route: 041
     Dates: start: 20120814
  2. PLAQUENIL (HYDROXYCHLOROQUINE SULFATE) / ORAL / TABLET, FILM COATED / 200 MILLIGRAM(S) [Concomitant]
  3. METHOTREXATE (METHOTREXATE) [Concomitant]
  4. PREDNISONE (PREDNISONE) [Concomitant]
  5. LEUCOVORIN (CALCIUM FOLINATE) [Concomitant]

REACTIONS (4)
  - Weight decreased [None]
  - Somnolence [None]
  - Flushing [None]
  - Headache [None]
